FAERS Safety Report 14750597 (Version 1)
Quarter: 2018Q2

REPORT INFORMATION
  Report Type: Spontaneous
  Country: US (occurrence: US)
  Receive Date: 20180412
  Receipt Date: 20180412
  Transmission Date: 20180711
  Serious: No
  Sender: FDA-Public Use
  Company Number: US-PFIZER INC-2018144137

PATIENT
  Age: 68 Year
  Sex: Female
  Weight: 80.74 kg

DRUGS (1)
  1. ADVIL LIQUI-GELS [Suspect]
     Active Substance: IBUPROFEN
     Dosage: UNK, 1X/DAY

REACTIONS (3)
  - Weight increased [Unknown]
  - Blood glucose increased [Unknown]
  - Fluid retention [Unknown]
